FAERS Safety Report 21326609 (Version 1)
Quarter: 2022Q3

REPORT INFORMATION
  Report Type: Other
  Country: CN (occurrence: None)
  Receive Date: 20220913
  Receipt Date: 20220913
  Transmission Date: 20221027
  Serious: Yes (Hospitalization, Other)
  Sender: FDA-Public Use
  Company Number: CN-ROCHE-1592551

PATIENT
  Age: 60 Year
  Sex: Female
  Weight: 55 kg

DRUGS (3)
  1. AVASTIN [Suspect]
     Active Substance: BEVACIZUMAB
     Indication: Rectal cancer
     Dosage: FORM OF ADMIN: 100 MG
     Route: 041
     Dates: start: 20141201
  2. XELODA [Suspect]
     Active Substance: CAPECITABINE
     Indication: Rectal cancer
     Route: 048
  3. OXALIPLATIN [Suspect]
     Active Substance: OXALIPLATIN
     Indication: Rectal cancer
     Route: 065

REACTIONS (18)
  - Nasopharyngitis [Unknown]
  - Pneumonitis [Unknown]
  - Rib fracture [Recovering/Resolving]
  - Drug hypersensitivity [Recovered/Resolved]
  - Splenic haemorrhage [Recovering/Resolving]
  - Gastrointestinal haemorrhage [Recovering/Resolving]
  - Renal impairment [Recovering/Resolving]
  - Vomiting [Unknown]
  - Skin exfoliation [Recovering/Resolving]
  - Osteoporosis [Unknown]
  - Ill-defined disorder [Unknown]
  - Protein urine present [Unknown]
  - Pyrexia [Unknown]
  - Disease progression [Not Recovered/Not Resolved]
  - Platelet count decreased [Recovering/Resolving]
  - White blood cell count decreased [Recovering/Resolving]
  - Blood creatinine increased [Unknown]
  - Renal impairment [Unknown]

NARRATIVE: CASE EVENT DATE: 20171101
